FAERS Safety Report 23281799 (Version 1)
Quarter: 2023Q4

REPORT INFORMATION
  Report Type: Report from Study
  Country: US (occurrence: US)
  Receive Date: 20231211
  Receipt Date: 20231211
  Transmission Date: 20240109
  Serious: Yes (Other)
  Sender: FDA-Public Use
  Company Number: US-ABBVIE-5527392

PATIENT
  Sex: Male

DRUGS (1)
  1. RINVOQ [Suspect]
     Active Substance: UPADACITINIB
     Indication: Colitis ulcerative
     Route: 048
     Dates: start: 20230510

REACTIONS (3)
  - Gastrointestinal pain [Unknown]
  - Colitis ulcerative [Not Recovered/Not Resolved]
  - Large intestinal haemorrhage [Unknown]

NARRATIVE: CASE EVENT DATE: 20230101
